FAERS Safety Report 16031927 (Version 1)
Quarter: 2019Q1

REPORT INFORMATION
  Report Type: Spontaneous
  Country: GB (occurrence: GB)
  Receive Date: 20190304
  Receipt Date: 20190304
  Transmission Date: 20190418
  Serious: Yes (Hospitalization)
  Sender: FDA-Public Use
  Company Number: GB-MYLANLABS-2019M1017875

PATIENT
  Age: 29 Year
  Sex: Male

DRUGS (1)
  1. CLOZARIL [Suspect]
     Active Substance: CLOZAPINE
     Indication: SCHIZOPHRENIA
     Dosage: UNK
     Route: 048
     Dates: start: 20190131, end: 20190223

REACTIONS (4)
  - Malaise [Unknown]
  - Neutrophilia [Unknown]
  - Myocarditis [Unknown]
  - Leukocytosis [Unknown]

NARRATIVE: CASE EVENT DATE: 201902
